FAERS Safety Report 20862548 (Version 1)
Quarter: 2022Q2

REPORT INFORMATION
  Report Type: Report from Study
  Country: US (occurrence: US)
  Receive Date: 20220523
  Receipt Date: 20220523
  Transmission Date: 20220720
  Serious: Yes (Other)
  Sender: FDA-Public Use
  Company Number: US-Ipsen Biopharmaceuticals, Inc.-2022-13981

PATIENT
  Sex: Male

DRUGS (1)
  1. SOMATULINE DEPOT [Suspect]
     Active Substance: LANREOTIDE ACETATE
     Indication: Acromegaly
     Route: 058
     Dates: start: 2019

REACTIONS (4)
  - Neuropathy peripheral [Recovering/Resolving]
  - Loss of consciousness [Recovering/Resolving]
  - Neck pain [Recovering/Resolving]
  - Gait disturbance [Recovering/Resolving]
